FAERS Safety Report 9628921 (Version 2)
Quarter: 2013Q4

REPORT INFORMATION
  Report Type: Spontaneous
  Country: US (occurrence: US)
  Receive Date: 20131017
  Receipt Date: 20131223
  Transmission Date: 20140711
  Serious: No
  Sender: FDA-Public Use
  Company Number: US-009507513-1310USA001512

PATIENT
  Sex: Female

DRUGS (4)
  1. REBETOL [Suspect]
     Indication: HEPATITIS C
     Dosage: UNK
     Route: 048
     Dates: start: 20080101, end: 20080201
  2. REBETOL [Suspect]
     Dosage: UNK
     Route: 048
     Dates: start: 20130927, end: 20131015
  3. PEGASYS [Suspect]
     Indication: HEPATITIS C
     Dosage: UNK
     Dates: start: 20080101, end: 20080201
  4. PEGASYS [Suspect]
     Dosage: UNK
     Dates: start: 20130927, end: 20131015

REACTIONS (5)
  - Vomiting [Unknown]
  - Amnesia [Unknown]
  - Amnesia [Unknown]
  - Nausea [Unknown]
  - Fatigue [Unknown]
